FAERS Safety Report 8704744 (Version 6)
Quarter: 2015Q2

REPORT INFORMATION
  Report Type: Spontaneous
  Country: US (occurrence: US)
  Receive Date: 20120803
  Receipt Date: 20150616
  Transmission Date: 20150821
  Serious: Yes (Hospitalization, Other)
  Sender: FDA-Public Use
  Company Number: US-MERCK-1207USA009306

PATIENT
  Sex: Female
  Weight: 96 kg

DRUGS (6)
  1. PRAVASTATIN [Concomitant]
     Active Substance: PRAVASTATIN\PRAVASTATIN SODIUM
     Indication: BLOOD CHOLESTEROL
     Dosage: 5 MG, UNK
     Route: 048
     Dates: start: 2001
  2. METFORMIN HYDROCHLORIDE. [Concomitant]
     Active Substance: METFORMIN HYDROCHLORIDE
     Indication: DIABETES MELLITUS
     Dosage: 500 MG, UNK
     Route: 048
     Dates: start: 2001
  3. BONIVA [Suspect]
     Active Substance: IBANDRONATE SODIUM
     Indication: OSTEOPOROSIS
     Dosage: 150 MG, Q MO
     Route: 048
     Dates: start: 2005, end: 2009
  4. FOSAMAX [Suspect]
     Active Substance: ALENDRONATE SODIUM
     Indication: OSTEOPOROSIS
     Dosage: 70 MG, UNK
     Route: 048
     Dates: start: 2002, end: 2005
  5. BONIVA [Suspect]
     Active Substance: IBANDRONATE SODIUM
     Indication: OSTEOPENIA
  6. FOSAMAX [Suspect]
     Active Substance: ALENDRONATE SODIUM
     Indication: MENOPAUSE

REACTIONS (62)
  - Hyperglycaemia [Unknown]
  - Fracture nonunion [Recovering/Resolving]
  - Hearing impaired [Unknown]
  - Hypertonic bladder [Unknown]
  - Muscular weakness [Unknown]
  - Urinary tract infection [Recovered/Resolved]
  - Asthenia [Unknown]
  - Headache [Unknown]
  - Intramedullary rod insertion [Unknown]
  - Anaemia postoperative [Unknown]
  - Intervertebral disc protrusion [Unknown]
  - Procedural nausea [Unknown]
  - Sinusitis [Recovered/Resolved]
  - Pruritus [Unknown]
  - Off label use [Unknown]
  - Drug hypersensitivity [Unknown]
  - Knee arthroplasty [Unknown]
  - Femur fracture [Unknown]
  - Sleep disorder [Unknown]
  - Dermatitis contact [Unknown]
  - Fatigue [Unknown]
  - Hypersensitivity [Unknown]
  - Urinary retention postoperative [Recovered/Resolved]
  - Knee operation [Unknown]
  - Device failure [Unknown]
  - Arthritis [Unknown]
  - Foot operation [Unknown]
  - Oestrogen deficiency [Unknown]
  - Hyperlipidaemia [Unknown]
  - Dyspnoea [Unknown]
  - Intervertebral disc operation [Unknown]
  - Anxiety [Unknown]
  - Diabetic neuropathy [Unknown]
  - Spinal disorder [Unknown]
  - Procedural vomiting [Unknown]
  - Unwanted awareness during anaesthesia [Unknown]
  - Rash [Unknown]
  - Muscle spasms [Unknown]
  - Mental status changes [Unknown]
  - Femur fracture [Unknown]
  - Restless legs syndrome [Unknown]
  - Hallucination [Unknown]
  - Depression [Unknown]
  - Stress [Unknown]
  - Intramedullary rod insertion [Unknown]
  - Medical device removal [Unknown]
  - Open reduction of fracture [Unknown]
  - Fracture nonunion [Unknown]
  - Low turnover osteopathy [Unknown]
  - Herpes zoster [Unknown]
  - Anaemia postoperative [Unknown]
  - Insomnia [Unknown]
  - Dry eye [Unknown]
  - Arthralgia [Unknown]
  - Bone graft [Unknown]
  - Device failure [Unknown]
  - Hypertension [Unknown]
  - Impaired healing [Unknown]
  - Osteoarthritis [Unknown]
  - Paraesthesia [Unknown]
  - Drug ineffective [Unknown]
  - Pain in extremity [Not Recovered/Not Resolved]

NARRATIVE: CASE EVENT DATE: 2002
